FAERS Safety Report 15814008 (Version 4)
Quarter: 2019Q1

REPORT INFORMATION
  Report Type: Spontaneous
  Country: US (occurrence: US)
  Receive Date: 20190111
  Receipt Date: 20190328
  Transmission Date: 20190417
  Serious: Yes (Other)
  Sender: FDA-Public Use
  Company Number: US-PFIZER INC-2019011315

PATIENT
  Age: 51 Year
  Sex: Male

DRUGS (7)
  1. HYDROCORTISONE. [Concomitant]
     Active Substance: HYDROCORTISONE
     Indication: PLASMA CELL MYELOMA
     Dosage: UNK
     Route: 037
     Dates: start: 20180306
  2. METHOTREXATE SODIUM. [Suspect]
     Active Substance: METHOTREXATE SODIUM
     Indication: PLASMA CELL MYELOMA
     Dosage: 4 DF, UNK
     Route: 037
     Dates: start: 20180206, end: 20180226
  3. CYTARABINE. [Concomitant]
     Active Substance: CYTARABINE
     Indication: PLASMA CELL MYELOMA
     Dosage: 4 DF, UNK
     Route: 037
     Dates: start: 20180206, end: 20180226
  4. METHOTREXATE SODIUM. [Suspect]
     Active Substance: METHOTREXATE SODIUM
     Indication: PLASMA CELL LEUKAEMIA
     Dosage: UNK
     Route: 037
     Dates: start: 20180306, end: 20180317
  5. HYDROCORTISONE. [Concomitant]
     Active Substance: HYDROCORTISONE
     Indication: PLASMA CELL LEUKAEMIA
     Dosage: 4 DF, UNK
     Route: 037
     Dates: start: 20180206, end: 20180226
  6. CYTARABINE. [Concomitant]
     Active Substance: CYTARABINE
     Indication: PLASMA CELL LEUKAEMIA
     Dosage: UNK
     Route: 037
     Dates: start: 20180313
  7. HYDROCORTISONE. [Concomitant]
     Active Substance: HYDROCORTISONE
     Dosage: UNK
     Route: 037
     Dates: start: 20180313

REACTIONS (1)
  - Myelopathy [Not Recovered/Not Resolved]

NARRATIVE: CASE EVENT DATE: 20180404
